FAERS Safety Report 9774608 (Version 1)
Quarter: 2013Q4

REPORT INFORMATION
  Report Type: Spontaneous
  Country: US (occurrence: US)
  Receive Date: 20131220
  Receipt Date: 20131220
  Transmission Date: 20140711
  Serious: Yes (Hospitalization)
  Sender: FDA-Public Use
  Company Number: US-DRREDDYS-USA/USA/13/0036512

PATIENT
  Age: 10 Year
  Sex: Male

DRUGS (1)
  1. ZOLPIDEM [Suspect]
     Indication: PRODUCT USED FOR UNKNOWN INDICATION
     Route: 048

REACTIONS (8)
  - Accidental overdose [Unknown]
  - Vomiting [Recovered/Resolved]
  - Somnolence [Recovered/Resolved]
  - Nystagmus [Recovered/Resolved]
  - Hypotension [Recovered/Resolved]
  - Sedation [Recovered/Resolved]
  - Unresponsive to stimuli [Recovered/Resolved]
  - Respiration abnormal [Recovered/Resolved]
